FAERS Safety Report 4487853-6 (Version None)
Quarter: 2004Q4

REPORT INFORMATION
  Report Type: 
  Country: None (occurrence: None)
  Receive Date: 20041025
  Receipt Date: 20041018
  Transmission Date: 20050328
  Serious: Yes (Other)
  Sender: FDA-Public Use
  Company Number: 2004-10-1094

PATIENT
  Age: 44 Year
  Sex: Male

DRUGS (2)
  1. INFERGEN (INTERFERON) INJECTABLE SOLUTON [Suspect]
     Indication: HEPATITIS C
     Dosage: 15 MCG QD SUBCUTANEOUS 5+ WEEKS
     Route: 058
  2. REBETOL [Suspect]
     Dosage: WT-BASED QD ORAL 5+ WEEKS
     Route: 048

REACTIONS (4)
  - BLINDNESS UNILATERAL [None]
  - OPTIC NEURITIS [None]
  - SCAR [None]
  - VISUAL FIELD DEFECT [None]
